FAERS Safety Report 7193107-X (Version None)
Quarter: 2010Q4

REPORT INFORMATION
  Report Type: 
  Country: None (occurrence: None)
  Receive Date: 20101223
  Receipt Date: 20100830
  Transmission Date: 20110411
  Serious: No
  Sender: FDA-Public Use
  Company Number: US-AMGEN-KDL434933

PATIENT

DRUGS (9)
  1. ENBREL [Suspect]
     Indication: PSORIATIC ARTHROPATHY
     Dosage: 50 MG, QWK
     Route: 058
     Dates: start: 20091023
  2. IRBESARTAN [Concomitant]
  3. CLOPIDOGREL BISULFATE [Concomitant]
  4. MELOXICAM [Concomitant]
  5. PANTOPRAZOLE SODIUM [Concomitant]
  6. CYANOCOBALAMIN [Concomitant]
  7. MYCOPHENOLATE MOFETIL [Concomitant]
  8. ESTRADIOL [Concomitant]
  9. INSULIN [Concomitant]

REACTIONS (6)
  - ARTHRALGIA [None]
  - INCREASED TENDENCY TO BRUISE [None]
  - INJECTION SITE ERYTHEMA [None]
  - INJECTION SITE HAEMATOMA [None]
  - INJECTION SITE PAIN [None]
  - THERAPEUTIC RESPONSE DECREASED [None]
